FAERS Safety Report 18696209 (Version 1)
Quarter: 2021Q1

REPORT INFORMATION
  Report Type: Spontaneous
  Country: US (occurrence: US)
  Receive Date: 20210104
  Receipt Date: 20210104
  Transmission Date: 20210419
  Serious: No
  Sender: FDA-Public Use
  Company Number: NVSC2020US345727

PATIENT
  Sex: Male

DRUGS (1)
  1. XIIDRA [Suspect]
     Active Substance: LIFITEGRAST
     Indication: MACULAR DEGENERATION
     Dosage: 2 DRP, BID FOR TWO DROPS IN MORNING AND TWO DROPS IN THE EVENING BEFORE BED,THE PROXIMATELY FOUR YEA
     Route: 065

REACTIONS (5)
  - Eye irritation [Unknown]
  - Ocular discomfort [Unknown]
  - Visual impairment [Unknown]
  - Inappropriate schedule of product administration [Unknown]
  - Lacrimation increased [Unknown]
